FAERS Safety Report 12813230 (Version 1)
Quarter: 2016Q4

REPORT INFORMATION
  Report Type: Spontaneous
  Country: US (occurrence: US)
  Receive Date: 20161005
  Receipt Date: 20161005
  Transmission Date: 20170207
  Serious: No
  Sender: FDA-Public Use
  Company Number: US-AMGEN-USASP2016019020

PATIENT
  Age: 77 Year
  Sex: Female

DRUGS (5)
  1. PROLIA [Suspect]
     Active Substance: DENOSUMAB
     Indication: OSTEOPOROSIS POSTMENOPAUSAL
     Dosage: UNK
     Route: 065
  2. VITAMIN C [Concomitant]
     Active Substance: ASCORBIC ACID
  3. DEPAKOTE [Concomitant]
     Active Substance: DIVALPROEX SODIUM
  4. ICAPS                              /08106801/ [Concomitant]
  5. VITAMIN D                          /00107901/ [Concomitant]
     Active Substance: ERGOCALCIFEROL

REACTIONS (2)
  - Back pain [Not Recovered/Not Resolved]
  - Dental caries [Unknown]

NARRATIVE: CASE EVENT DATE: 2016
